FAERS Safety Report 5760392-8 (Version None)
Quarter: 2008Q2

REPORT INFORMATION
  Report Type: 
  Country: None (occurrence: None)
  Receive Date: 20080602
  Receipt Date: 20080521
  Transmission Date: 20081010
  Serious: Yes (Disabling)
  Sender: FDA-Public Use
  Company Number: GXKR2008GB04681

PATIENT
  Age: 67 Year
  Weight: 76 kg

DRUGS (2)
  1. SIMVASTATIN [Suspect]
     Dosage: ORAL
     Route: 048
     Dates: end: 20070401
  2. AZATHIOPRINE [Concomitant]

REACTIONS (2)
  - COUGH [None]
  - SLEEP DISORDER [None]
